FAERS Safety Report 25265183 (Version 1)
Quarter: 2025Q2

REPORT INFORMATION
  Report Type: Report from Study
  Country: US (occurrence: US)
  Receive Date: 20250502
  Receipt Date: 20250502
  Transmission Date: 20250716
  Serious: Yes (Other)
  Sender: ALNYLAM PHARMACEUTICALS
  Company Number: US-ALNYLAM PHARMACEUTICALS, INC.-ALN-2025-002938

PATIENT

DRUGS (1)
  1. GIVLAARI [Suspect]
     Active Substance: GIVOSIRAN SODIUM
     Indication: Product used for unknown indication
     Dosage: 187.1 MILLIGRAM, MONTHLY
     Route: 058
     Dates: start: 20250304, end: 20250304

REACTIONS (3)
  - Porphyria acute [Recovering/Resolving]
  - Flushing [Recovering/Resolving]
  - Skin reaction [Recovering/Resolving]
